FAERS Safety Report 8384061-3 (Version None)
Quarter: 2012Q2

REPORT INFORMATION
  Report Type: 
  Country: None (occurrence: None)
  Receive Date: 20120524
  Receipt Date: 20120507
  Transmission Date: 20120825
  Serious: Yes (Hospitalization)
  Sender: FDA-Public Use
  Company Number: CHPA2012US010638

PATIENT
  Age: 91 Year
  Sex: Female

DRUGS (1)
  1. BENEFIBER UNKNOWN [Suspect]
     Indication: BOWEL MOVEMENT IRREGULARITY
     Dosage: UNK, UNK
     Route: 048
     Dates: start: 20111001, end: 20111001

REACTIONS (3)
  - MALAISE [None]
  - OFF LABEL USE [None]
  - DEHYDRATION [None]
